FAERS Safety Report 12755448 (Version 1)
Quarter: 2016Q3

REPORT INFORMATION
  Report Type: Spontaneous
  Country: US (occurrence: US)
  Receive Date: 20160916
  Receipt Date: 20160916
  Transmission Date: 20161109
  Serious: No
  Sender: FDA-Public Use
  Company Number: US-009507513-1609USA002156

PATIENT
  Sex: Female

DRUGS (2)
  1. NASONEX [Suspect]
     Active Substance: MOMETASONE FUROATE
     Dosage: 2 PUFFS IN EACH NOSTRIL ONCE DAILY
     Route: 055
     Dates: start: 201608
  2. ZOLOFT [Concomitant]
     Active Substance: SERTRALINE HYDROCHLORIDE

REACTIONS (3)
  - Wrist fracture [Unknown]
  - Drug dose omission [Unknown]
  - Road traffic accident [Unknown]

NARRATIVE: CASE EVENT DATE: 201608
